FAERS Safety Report 10213357 (Version 1)
Quarter: 2014Q2

REPORT INFORMATION
  Report Type: Spontaneous
  Country: US (occurrence: None)
  Receive Date: 20140529
  Receipt Date: 20140529
  Transmission Date: 20141212
  Serious: Yes (Death, Other)
  Sender: FDA-Public Use
  Company Number: US-ZYDUS-003502

PATIENT
  Sex: Female

DRUGS (1)
  1. RIBAVIRIN [Suspect]
     Indication: RESPIRATORY SYNCYTIAL VIRUS INFECTION
     Route: 048

REACTIONS (4)
  - Haemolytic anaemia [None]
  - Lactic acidosis [None]
  - Graft versus host disease in gastrointestinal tract [None]
  - Acute leukaemia [None]
